FAERS Safety Report 10056009 (Version 1)
Quarter: 2014Q2

REPORT INFORMATION
  Report Type: Spontaneous
  Country: FR (occurrence: None)
  Receive Date: 20140401
  Receipt Date: 20140401
  Transmission Date: 20141212
  Serious: Yes (Hospitalization)
  Sender: FDA-Public Use
  Company Number: B0977314A

PATIENT
  Age: 41 Year
  Sex: Female

DRUGS (13)
  1. PAROXETINE HYDROCHLORIDE [Suspect]
     Indication: PRODUCT USED FOR UNKNOWN INDICATION
     Route: 048
     Dates: end: 200908
  2. TRASTUZUMAB [Suspect]
     Indication: HER-2 POSITIVE BREAST CANCER
     Dosage: CYCLIC /SEE TEXT
     Dates: start: 20090310, end: 20090511
  3. PACLITAXEL [Suspect]
     Indication: HER-2 POSITIVE BREAST CANCER
     Dosage: CYCLIC /INTRAVENOUS
     Route: 042
     Dates: start: 20090401, end: 20090525
  4. POTASSIUM CHLORIDE [Suspect]
     Indication: PRODUCT USED FOR UNKNOWN INDICATION
     Route: 048
     Dates: end: 200908
  5. FRUSEMIDE [Suspect]
     Indication: PRODUCT USED FOR UNKNOWN INDICATION
     Route: 048
     Dates: end: 200908
  6. HYDROXYZINE HYDROCHLORIDE [Suspect]
     Indication: PRODUCT USED FOR UNKNOWN INDICATION
     Route: 048
     Dates: end: 200908
  7. SILVER SULFADIAZINE [Suspect]
     Indication: PRODUCT USED FOR UNKNOWN INDICATION
     Dates: end: 200908
  8. BROMAZEPAM [Suspect]
     Indication: PRODUCT USED FOR UNKNOWN INDICATION
     Route: 048
     Dates: end: 200908
  9. LEVETIRACETAM [Concomitant]
  10. PREDNISONE [Concomitant]
  11. SPIRONOLACTONE [Concomitant]
  12. CETIRIZINE HYDROCHLORIDE [Concomitant]
  13. DOCETAXEL [Concomitant]

REACTIONS (9)
  - Photosensitivity reaction [None]
  - Oedema [None]
  - Rash [None]
  - Blister [None]
  - Blister [None]
  - Wound secretion [None]
  - Toxic skin eruption [None]
  - Ectropion [None]
  - Eosinophilia [None]
